FAERS Safety Report 6193978-X (Version None)
Quarter: 2009Q2

REPORT INFORMATION
  Report Type: 
  Country: None (occurrence: None)
  Receive Date: 20090518
  Receipt Date: 20090511
  Transmission Date: 20091009
  Serious: Yes (Other)
  Sender: FDA-Public Use
  Company Number: PHEH2009US03498

PATIENT
  Sex: Male

DRUGS (11)
  1. ZOMETA [Suspect]
     Dosage: MONTHLY
  2. AREDIA [Suspect]
  3. PEPCID [Concomitant]
  4. SALAGEN [Concomitant]
  5. ZOLOFT [Concomitant]
  6. DILAUDID [Concomitant]
  7. COUMADIN [Concomitant]
  8. TENORMIN [Concomitant]
  9. NORVASC [Concomitant]
  10. FOSAMAX [Concomitant]
  11. STEROIDS NOS [Concomitant]

REACTIONS (15)
  - ANAEMIA [None]
  - BONE DISORDER [None]
  - DEBRIDEMENT [None]
  - DEPRESSION [None]
  - ENDODONTIC PROCEDURE [None]
  - HEPATIC ENZYME ABNORMAL [None]
  - HYPERTENSION [None]
  - HYPERTONIC BLADDER [None]
  - MUSCULOSKELETAL CHEST PAIN [None]
  - OSTEOARTHRITIS [None]
  - OSTEONECROSIS [None]
  - OSTEOPOROSIS [None]
  - PARAESTHESIA [None]
  - RENAL FAILURE [None]
  - SCOLIOSIS [None]
